FAERS Safety Report 21295962 (Version 1)
Quarter: 2022Q3

REPORT INFORMATION
  Report Type: Spontaneous
  Country: ES (occurrence: ES)
  Receive Date: 20220906
  Receipt Date: 20220906
  Transmission Date: 20221027
  Serious: Yes (Hospitalization)
  Sender: FDA-Public Use
  Company Number: None

PATIENT
  Age: 74 Year
  Sex: Female

DRUGS (1)
  1. REMICADE [Suspect]
     Active Substance: INFLIXIMAB
     Indication: Neutrophilic dermatosis
     Dosage: 5 MG/KG CADA 8 SEMANAS
     Route: 041
     Dates: start: 2007, end: 20220614

REACTIONS (3)
  - Bronchitis [Recovered/Resolved]
  - Haemoptysis [Recovered/Resolved]
  - Pulmonary vasculitis [Not Recovered/Not Resolved]

NARRATIVE: CASE EVENT DATE: 20220330
